FAERS Safety Report 6124171-4 (Version None)
Quarter: 2009Q1

REPORT INFORMATION
  Report Type: 
  Country: None (occurrence: None)
  Receive Date: 20090319
  Receipt Date: 20090311
  Transmission Date: 20090719
  Serious: Yes (Hospitalization)
  Sender: FDA-Public Use
  Company Number: DE-JNJFOC-20090302706

PATIENT
  Age: 67 Year
  Sex: Male

DRUGS (15)
  1. HALDOL [Suspect]
     Route: 048
  2. HALDOL [Suspect]
     Route: 048
  3. HALDOL [Suspect]
     Route: 048
  4. HALDOL [Suspect]
     Route: 048
  5. HALDOL [Suspect]
     Indication: DRUG USE FOR UNKNOWN INDICATION
     Route: 048
  6. SEROQUEL [Suspect]
     Indication: DRUG USE FOR UNKNOWN INDICATION
     Route: 048
  7. CITALOPRAM HYDROBROMIDE [Suspect]
     Route: 048
  8. CITALOPRAM HYDROBROMIDE [Suspect]
     Indication: DRUG USE FOR UNKNOWN INDICATION
     Route: 048
  9. VALPROATE SODIUM [Suspect]
     Indication: DRUG USE FOR UNKNOWN INDICATION
     Route: 048
  10. OMEP [Suspect]
     Indication: DRUG USE FOR UNKNOWN INDICATION
     Route: 048
  11. BISOPROLOL FUMARATE [Concomitant]
     Route: 048
  12. SIMVAHEXAL [Concomitant]
     Route: 048
  13. EDRONAX [Concomitant]
     Route: 048
  14. EDRONAX [Concomitant]
     Route: 048
  15. TAVOR [Concomitant]
     Route: 048

REACTIONS (8)
  - CHILLS [None]
  - DEPRESSION [None]
  - EXTRAPYRAMIDAL DISORDER [None]
  - FALL [None]
  - FEMORAL NECK FRACTURE [None]
  - HYPONATRAEMIA [None]
  - SLEEP DISORDER [None]
  - WEIGHT DECREASED [None]
